FAERS Safety Report 24230824 (Version 1)
Quarter: 2024Q3

REPORT INFORMATION
  Report Type: Spontaneous
  Country: US (occurrence: US)
  Receive Date: 20240821
  Receipt Date: 20240821
  Transmission Date: 20241017
  Serious: No
  Sender: LUPIN
  Company Number: US-LUPIN PHARMACEUTICALS INC.-2024-07995

PATIENT

DRUGS (1)
  1. MIRABEGRON [Suspect]
     Active Substance: MIRABEGRON
     Indication: Product used for unknown indication
     Dosage: UNK
     Route: 065
     Dates: start: 20240806

REACTIONS (1)
  - Diarrhoea [Not Recovered/Not Resolved]

NARRATIVE: CASE EVENT DATE: 20240806
